FAERS Safety Report 9793049 (Version 1)
Quarter: 2013Q4

REPORT INFORMATION
  Report Type: Spontaneous
  Country: US (occurrence: None)
  Receive Date: 20131231
  Receipt Date: 20131231
  Transmission Date: 20140711
  Serious: Yes (Other)
  Sender: FDA-Public Use
  Company Number: None

PATIENT
  Age: 18 Year
  Sex: Male
  Weight: 58.97 kg

DRUGS (1)
  1. METHYLPHENIDATE ER [Suspect]
     Indication: ATTENTION DEFICIT/HYPERACTIVITY DISORDER
     Dosage: 1 PILL
     Route: 048
     Dates: start: 20131204, end: 20131229

REACTIONS (7)
  - Mood altered [None]
  - Anger [None]
  - Aggression [None]
  - Aggression [None]
  - Drug effect decreased [None]
  - Product substitution issue [None]
  - Product quality issue [None]
